FAERS Safety Report 14194568 (Version 2)
Quarter: 2017Q4

REPORT INFORMATION
  Report Type: Spontaneous
  Country: GE (occurrence: GE)
  Receive Date: 20171116
  Receipt Date: 20171228
  Transmission Date: 20180321
  Serious: Yes (Death, Hospitalization, Other)
  Sender: FDA-Public Use
  Company Number: GE-LUPIN PHARMACEUTICALS INC.-2017-06599

PATIENT
  Age: 34 Year
  Sex: Female

DRUGS (1)
  1. MISOPROSTOL TABLET, 0.2 MG [Suspect]
     Active Substance: MISOPROSTOL
     Indication: ABORTION INDUCED
     Dosage: 10 DF, SINGLE
     Route: 048

REACTIONS (7)
  - Cardiac arrest [Fatal]
  - Self-medication [Unknown]
  - Overdose [Unknown]
  - Retained products of conception [Recovered/Resolved]
  - Vaginal haemorrhage [Recovering/Resolving]
  - Septic shock [Unknown]
  - Cervical dilatation [Recovered/Resolved]
